FAERS Safety Report 19176242 (Version 1)
Quarter: 2021Q2

REPORT INFORMATION
  Report Type: Spontaneous
  Country: ES (occurrence: ES)
  Receive Date: 20210424
  Receipt Date: 20210424
  Transmission Date: 20210717
  Serious: Yes (Other)
  Sender: FDA-Public Use
  Company Number: NVSC2021ES092770

PATIENT
  Age: 59 Year
  Sex: Female

DRUGS (1)
  1. AMOXICILLIN,CLAVULANIC ACID [Suspect]
     Active Substance: AMOXICILLIN\CLAVULANIC ACID
     Indication: EXPOSURE TO COMMUNICABLE DISEASE
     Dosage: 1 DF, Q8H (30 TABLETS)
     Route: 048
     Dates: start: 20210323, end: 20210325

REACTIONS (1)
  - Angioedema [Recovered/Resolved]

NARRATIVE: CASE EVENT DATE: 20210325
